FAERS Safety Report 8238221-2 (Version None)
Quarter: 2012Q1

REPORT INFORMATION
  Report Type: 
  Country: None (occurrence: None)
  Receive Date: 20120327
  Receipt Date: 20120326
  Transmission Date: 20120608
  Serious: Yes (Death)
  Sender: FDA-Public Use
  Company Number: PHFR2012GB000991

PATIENT
  Sex: Male

DRUGS (6)
  1. HYOSCINE HYDROBROMIDE [Concomitant]
     Dosage: 300 UG, DAILY
     Route: 048
     Dates: start: 20110701
  2. ZOPICLONE [Concomitant]
     Indication: SLEEP DISORDER
     Dosage: 3.75 MG, DAILY
     Route: 048
     Dates: start: 20110601
  3. NICOTINE [Concomitant]
     Indication: NICOTINE DEPENDENCE
     Dosage: 15 MG, DAILY
     Dates: start: 20111101
  4. AMITRIPTYLINE HCL [Concomitant]
     Indication: PAIN
     Dosage: 200 MG, DAILY
     Route: 048
     Dates: start: 20110701
  5. OLANZAPINE [Concomitant]
     Indication: SCHIZOPHRENIA
     Dosage: 15 MG, DAILY
     Route: 048
     Dates: start: 20111006
  6. CLOZARIL [Suspect]
     Indication: SCHIZOPHRENIA
     Dosage: 250 MG, DAILY
     Route: 048
     Dates: start: 20100924

REACTIONS (1)
  - DEATH [None]
